FAERS Safety Report 21543242 (Version 1)
Quarter: 2022Q4

REPORT INFORMATION
  Report Type: Spontaneous
  Country: SK (occurrence: SK)
  Receive Date: 20221102
  Receipt Date: 20221102
  Transmission Date: 20230113
  Serious: Yes (Other)
  Sender: FDA-Public Use
  Company Number: SK-ABBVIE-4179482

PATIENT
  Sex: Male

DRUGS (1)
  1. UPADACITINIB [Suspect]
     Active Substance: UPADACITINIB
     Indication: Rheumatoid arthritis

REACTIONS (6)
  - Aortic thrombosis [Unknown]
  - Weight decreased [Unknown]
  - Arthritis [Unknown]
  - Pyrexia [Unknown]
  - Gastric cyst [Unknown]
  - C-reactive protein increased [Unknown]
